FAERS Safety Report 5717346-7 (Version None)
Quarter: 2008Q2

REPORT INFORMATION
  Report Type: 
  Country: None (occurrence: None)
  Receive Date: 20080425
  Receipt Date: 20080418
  Transmission Date: 20081010
  Serious: Yes (Hospitalization)
  Sender: FDA-Public Use
  Company Number: BR-BAYER-200813205LA

PATIENT
  Age: 27 Year
  Sex: Female

DRUGS (11)
  1. YASMIN [Suspect]
     Indication: ORAL CONTRACEPTION
     Route: 048
     Dates: start: 20060101
  2. CITALOPRAM HYDROBROMIDE [Concomitant]
     Indication: ANXIETY
     Route: 048
     Dates: start: 20071201
  3. BUSCOPAN [Concomitant]
     Indication: RENAL STONE REMOVAL
     Route: 042
     Dates: start: 20080308, end: 20080311
  4. PROFENID [Concomitant]
     Indication: RENAL STONE REMOVAL
     Route: 042
     Dates: start: 20080308, end: 20080311
  5. KEFLIN [Concomitant]
     Indication: RENAL STONE REMOVAL
     Route: 042
     Dates: start: 20080308, end: 20080311
  6. TRAMADOL HCL [Concomitant]
     Indication: RENAL STONE REMOVAL
     Route: 042
     Dates: start: 20080308, end: 20080309
  7. CIPROFLOXACINO [Concomitant]
     Indication: RENAL STONE REMOVAL
     Route: 048
     Dates: start: 20080311
  8. CIPROFLOXACINO [Concomitant]
     Route: 048
     Dates: end: 20080409
  9. TROPINAL [Concomitant]
     Indication: RENAL SURGERY
     Route: 048
     Dates: start: 20080311
  10. TROPINAL [Concomitant]
     Route: 048
     Dates: end: 20080409
  11. CELEBRA [Concomitant]
     Indication: RENAL STONE REMOVAL
     Route: 048
     Dates: start: 20080311, end: 20080321

REACTIONS (2)
  - NEPHROLITHIASIS [None]
  - VOMITING [None]
